FAERS Safety Report 18871984 (Version 1)
Quarter: 2021Q1

REPORT INFORMATION
  Report Type: Spontaneous
  Country: US (occurrence: US)
  Receive Date: 20210209
  Receipt Date: 20210209
  Transmission Date: 20210420
  Serious: Yes (Hospitalization)
  Sender: FDA-Public Use
  Company Number: None

PATIENT
  Age: 10 Year
  Sex: Male
  Weight: 55.4 kg

DRUGS (3)
  1. RIASTAP [Suspect]
     Active Substance: FIBRINOGEN HUMAN
     Indication: BLOOD FIBRINOGEN DECREASED
     Route: 042
     Dates: start: 20210121, end: 20210121
  2. RPO CODMAN PROGRAMMABLE VENTRICULOATRIAL SHUNT [Concomitant]
  3. RIASTAP [Suspect]
     Active Substance: FIBRINOGEN HUMAN
     Indication: BLOOD FIBRINOGEN DECREASED
     Route: 042
     Dates: start: 20210118, end: 20210118

REACTIONS (4)
  - Dilatation ventricular [None]
  - Headache [None]
  - Shunt malfunction [None]
  - Thrombosis in device [None]

NARRATIVE: CASE EVENT DATE: 20210121
